FAERS Safety Report 5069121-7 (Version None)
Quarter: 2006Q3

REPORT INFORMATION
  Report Type: 
  Country: None (occurrence: None)
  Receive Date: 20060731
  Receipt Date: 20060719
  Transmission Date: 20061208
  Serious: Yes (Other)
  Sender: FDA-Public Use
  Company Number: 2006081230

PATIENT
  Sex: Female

DRUGS (1)
  1. LYRICA [Suspect]
     Indication: NERVE INJURY
     Dates: start: 20051201, end: 20060622

REACTIONS (5)
  - ABDOMINAL DISTENSION [None]
  - BLISTER [None]
  - SKIN LESION [None]
  - SWELLING [None]
  - WOUND SECRETION [None]
